FAERS Safety Report 20772552 (Version 1)
Quarter: 2022Q2

REPORT INFORMATION
  Report Type: Spontaneous
  Country: US (occurrence: US)
  Receive Date: 20220502
  Receipt Date: 20220502
  Transmission Date: 20220721
  Serious: Yes (Hospitalization, Other)
  Sender: FDA-Public Use
  Company Number: US-SA-SAC20220428002031

PATIENT
  Age: 17 Year
  Sex: Female

DRUGS (2)
  1. DUPIXENT [Suspect]
     Active Substance: DUPILUMAB
     Dosage: UNK
  2. MONTELUKAST [Concomitant]
     Active Substance: MONTELUKAST SODIUM
     Dosage: 10 MG
     Route: 048

REACTIONS (9)
  - Immune thrombocytopenia [Recovering/Resolving]
  - Petechiae [Unknown]
  - Purpura [Not Recovered/Not Resolved]
  - Headache [Not Recovered/Not Resolved]
  - Oral disorder [Unknown]
  - Microcytic anaemia [Not Recovered/Not Resolved]
  - Disease progression [Unknown]
  - Platelet count decreased [Unknown]
  - Haemoglobin decreased [Unknown]
